FAERS Safety Report 7641454-7 (Version None)
Quarter: 2011Q3

REPORT INFORMATION
  Report Type: 
  Country: None (occurrence: None)
  Receive Date: 20110728
  Receipt Date: 20110722
  Transmission Date: 20111222
  Serious: Yes (Hospitalization, Other)
  Sender: FDA-Public Use
  Company Number: FR-PFIZER INC-2011166730

PATIENT
  Age: 84 Year
  Sex: Male

DRUGS (6)
  1. NAFTIDROFURYL [Concomitant]
     Indication: ARTERIAL DISORDER
     Dosage: UNK
     Route: 048
     Dates: end: 20100920
  2. MICARDIS HCT [Concomitant]
     Indication: HYPERTENSION
     Dosage: 1 DF, 1X/DAY
     Route: 048
  3. ACETAMINOPHEN [Concomitant]
     Indication: PAIN
     Dosage: UNK
     Route: 048
     Dates: end: 20100920
  4. EFFEXOR XR [Suspect]
     Indication: DEPRESSION
     Dosage: 75 MG, 1X/DAY
     Route: 048
  5. PLAVIX [Suspect]
     Indication: THROMBOSIS PROPHYLAXIS
     Dosage: UNK
     Route: 048
     Dates: end: 20100920
  6. CRESTOR [Concomitant]
     Indication: HYPERCHOLESTEROLAEMIA
     Dosage: 10 MG, 1X/DAY
     Route: 048
     Dates: end: 20100920

REACTIONS (2)
  - HAEMORRHAGIC STROKE [None]
  - LUNG INFECTION [None]
